FAERS Safety Report 5517720-8 (Version None)
Quarter: 2007Q4

REPORT INFORMATION
  Report Type: 
  Country: None (occurrence: None)
  Receive Date: 20071114
  Receipt Date: 20071107
  Transmission Date: 20080405
  Serious: Yes (Life-Threatening, Disabling)
  Sender: FDA-Public Use
  Company Number: US-BAXTER-2007BH008517

PATIENT
  Age: 27 Year
  Sex: Male

DRUGS (8)
  1. BREVIBLOC [Suspect]
     Indication: TACHYCARDIA
     Route: 042
     Dates: start: 20040423, end: 20040423
  2. SEVOFLURANE [Suspect]
     Indication: MAINTENANCE OF ANAESTHESIA
     Route: 065
     Dates: start: 20040423, end: 20070423
  3. PROPOFOL [Suspect]
     Indication: ENDOTRACHEAL INTUBATION
     Route: 042
     Dates: start: 20040423, end: 20040423
  4. VECURONIUM BROMIDE [Suspect]
     Indication: ANAESTHESIA
     Route: 042
     Dates: start: 20040423, end: 20040423
  5. LIDOCAINE AND EPINEPHRINE [Suspect]
     Indication: ANAESTHESIA
     Route: 042
     Dates: start: 20040423, end: 20040423
  6. OXYGEN [Concomitant]
     Indication: DRUG USE FOR UNKNOWN INDICATION
     Dosage: DOSE UNIT:UNKNOWN
     Route: 065
     Dates: start: 20040423, end: 20040423
  7. NITROUS OXIDE [Concomitant]
     Indication: DRUG USE FOR UNKNOWN INDICATION
     Dosage: DOSE UNIT:UNKNOWN
     Route: 065
     Dates: start: 20040423, end: 20040423
  8. VEEN-F [Concomitant]
     Indication: DRUG USE FOR UNKNOWN INDICATION
     Dosage: DOSE UNIT:UNKNOWN
     Route: 065
     Dates: start: 20040423, end: 20040423

REACTIONS (9)
  - ANAPHYLACTIC REACTION [None]
  - BRADYCARDIA [None]
  - CARDIAC ARREST [None]
  - CONVULSION [None]
  - CRANIAL NERVE DISORDER [None]
  - DELAYED RECOVERY FROM ANAESTHESIA [None]
  - MENTAL IMPAIRMENT [None]
  - SHOCK [None]
  - VENTRICULAR FIBRILLATION [None]
